FAERS Safety Report 11304798 (Version 3)
Quarter: 2016Q1

REPORT INFORMATION
  Report Type: Spontaneous
  Country: CA (occurrence: CA)
  Receive Date: 20150723
  Receipt Date: 20160128
  Transmission Date: 20160525
  Serious: Yes (Other)
  Sender: FDA-Public Use
  Company Number: CA-PFIZER INC-2015243174

PATIENT
  Age: 77 Year
  Sex: Female
  Weight: 81 kg

DRUGS (8)
  1. BERIPLEX P/N [Suspect]
     Active Substance: COAGULATION FACTOR IX HUMAN\COAGULATION FACTOR VII HUMAN\COAGULATION FACTOR X HUMAN\PROTEIN C\PROTEIN S HUMAN\PROTHROMBIN
     Indication: PROCOAGULANT THERAPY
     Dosage: 40ML AND 9 ML
     Route: 065
     Dates: start: 20141223
  2. BERIPLEX P/N [Suspect]
     Active Substance: COAGULATION FACTOR IX HUMAN\COAGULATION FACTOR VII HUMAN\COAGULATION FACTOR X HUMAN\PROTEIN C\PROTEIN S HUMAN\PROTHROMBIN
     Dosage: UNK
     Route: 042
     Dates: start: 20130830
  3. VITAMIN K [Suspect]
     Active Substance: PHYTONADIONE
     Dosage: UNK
     Route: 042
     Dates: start: 20141223
  4. PANTOLOC [Suspect]
     Active Substance: PANTOPRAZOLE SODIUM
     Dosage: 80 MG, UNK
     Route: 065
  5. INSULIN [Suspect]
     Active Substance: INSULIN NOS
     Dosage: 25 IU, UNK
     Route: 065
     Dates: start: 20141223
  6. BERIPLEX P/N [Suspect]
     Active Substance: COAGULATION FACTOR IX HUMAN\COAGULATION FACTOR VII HUMAN\COAGULATION FACTOR X HUMAN\PROTEIN C\PROTEIN S HUMAN\PROTHROMBIN
     Dosage: UNK
     Route: 042
     Dates: start: 20130829
  7. BERIPLEX P/N [Suspect]
     Active Substance: COAGULATION FACTOR IX HUMAN\COAGULATION FACTOR VII HUMAN\COAGULATION FACTOR X HUMAN\PROTEIN C\PROTEIN S HUMAN\PROTHROMBIN
     Dosage: UNK
     Route: 042
     Dates: start: 20121216
  8. COUMADIN [Concomitant]
     Active Substance: WARFARIN SODIUM
     Dosage: UNK

REACTIONS (8)
  - Myocardial ischaemia [Recovered/Resolved]
  - Anxiety [Recovered/Resolved]
  - Chest pain [Recovered/Resolved]
  - Headache [Recovered/Resolved]
  - Limb discomfort [Recovered/Resolved]
  - Pain in extremity [Recovered/Resolved]
  - Hypoaesthesia [Recovered/Resolved]
  - Tachycardia [Recovered/Resolved]

NARRATIVE: CASE EVENT DATE: 20141223
